FAERS Safety Report 4837462-1 (Version None)
Quarter: 2005Q4

REPORT INFORMATION
  Report Type: 
  Country: None (occurrence: None)
  Receive Date: 20051128
  Receipt Date: 20051115
  Transmission Date: 20060501
  Serious: Yes (Other)
  Sender: FDA-Public Use
  Company Number: FR-JNJFOC-20050906809

PATIENT
  Sex: Male

DRUGS (2)
  1. RISPERDAL [Suspect]
     Route: 048
  2. TRANXENE [Concomitant]

REACTIONS (3)
  - BULIMIA NERVOSA [None]
  - GYNAECOMASTIA [None]
  - WEIGHT INCREASED [None]
